FAERS Safety Report 4763383-9 (Version None)
Quarter: 2005Q3

REPORT INFORMATION
  Report Type: 
  Country: None (occurrence: None)
  Receive Date: 20050902
  Receipt Date: 20050824
  Transmission Date: 20060218
  Serious: Yes (Death, Hospitalization)
  Sender: FDA-Public Use
  Company Number: 2005-06-0586

PATIENT
  Age: 54 Year
  Sex: Male
  Weight: 60.3284 kg

DRUGS (9)
  1. TEMODAR [Suspect]
     Indication: GLIOBLASTOMA MULTIFORME
     Dosage: SEE IMAGE
     Route: 048
     Dates: start: 20050205, end: 20050319
  2. TEMODAR [Suspect]
     Indication: GLIOBLASTOMA MULTIFORME
     Dosage: SEE IMAGE
     Route: 048
     Dates: start: 20050421, end: 20050428
  3. TEMODAR [Suspect]
     Indication: GLIOBLASTOMA MULTIFORME
     Dosage: SEE IMAGE
     Route: 048
     Dates: start: 20050205, end: 20050524
  4. TEMODAR [Suspect]
     Indication: GLIOBLASTOMA MULTIFORME
     Dosage: SEE IMAGE
     Route: 048
     Dates: start: 20050522, end: 20050524
  5. DECADRON [Concomitant]
  6. CEREBRAL EDEMA [Concomitant]
  7. BUMEX [Concomitant]
  8. DEPAKOTE [Concomitant]
  9. RADIATION THERAPY [Concomitant]

REACTIONS (3)
  - ASPIRATION [None]
  - DRUG TOXICITY [None]
  - PNEUMONITIS [None]
